FAERS Safety Report 7346867-9 (Version None)
Quarter: 2011Q1

REPORT INFORMATION
  Report Type: 
  Country: None (occurrence: None)
  Receive Date: 20110303
  Receipt Date: 20110221
  Transmission Date: 20110831
  Serious: Yes (Hospitalization)
  Sender: FDA-Public Use
  Company Number: 2011030895

PATIENT
  Age: 67 Year
  Sex: Male

DRUGS (5)
  1. CARBOPLATIN [Concomitant]
  2. DALTEPARIN SODIUM [Suspect]
     Indication: LUNG ADENOCARCINOMA STAGE IV
     Dosage: 5000 IU, 1X/DAY, SUBCUTANEOUS
     Route: 058
     Dates: start: 20101020
  3. *SERETIDE EVOHALER (FLUTICASONE PROPIONATE, SALMETEROL XINAFOATE) UNKN [Suspect]
     Dosage: 250 UG, 2X/DAY, RESPIRATORY
     Route: 055
  4. AUGMENTIN '125' [Concomitant]
  5. FOLIC ACID [Concomitant]

REACTIONS (5)
  - PNEUMONIA [None]
  - BLOOD PRESSURE DECREASED [None]
  - LOWER RESPIRATORY TRACT INFECTION [None]
  - SUPRAVENTRICULAR TACHYCARDIA [None]
  - PLATELET COUNT INCREASED [None]
